FAERS Safety Report 19081838 (Version 8)
Quarter: 2021Q3

REPORT INFORMATION
  Report Type: Spontaneous
  Country: JP (occurrence: JP)
  Receive Date: 20210401
  Receipt Date: 20210728
  Transmission Date: 20211014
  Serious: Yes (Hospitalization, Other)
  Sender: FDA-Public Use
  Company Number: JP-BRISTOL-MYERS SQUIBB COMPANY-BMS-2021-030495

PATIENT
  Age: 69 Year
  Sex: Female

DRUGS (4)
  1. OPDIVO [Suspect]
     Active Substance: NIVOLUMAB
     Indication: MALIGNANT MELANOMA
     Dosage: 480 MILLIGRAM
     Route: 041
     Dates: start: 20201106, end: 20210125
  2. BILANOA [Concomitant]
     Active Substance: BILASTINE
     Indication: PRODUCT USED FOR UNKNOWN INDICATION
     Dosage: UNK
     Route: 065
  3. OPDIVO [Suspect]
     Active Substance: NIVOLUMAB
     Dosage: UNK
     Route: 041
     Dates: start: 20210310
  4. YERVOY [Suspect]
     Active Substance: IPILIMUMAB
     Indication: MALIGNANT MELANOMA
     Dosage: 100 MILLIGRAM
     Route: 041
     Dates: start: 20210125

REACTIONS (4)
  - Hypophysitis [Recovered/Resolved]
  - Cardiac tamponade [Recovered/Resolved]
  - Adrenal insufficiency [Recovered/Resolved]
  - Pericardial effusion [Recovered/Resolved]

NARRATIVE: CASE EVENT DATE: 20210301
